FAERS Safety Report 14907592 (Version 1)
Quarter: 2018Q2

REPORT INFORMATION
  Report Type: Spontaneous
  Country: US (occurrence: US)
  Receive Date: 20180428
  Receipt Date: 20180428
  Transmission Date: 20180711
  Serious: No
  Sender: FDA-Public Use
  Company Number: None

PATIENT
  Age: 63 Year
  Sex: Female

DRUGS (1)
  1. ISENTRESS [Suspect]
     Active Substance: RALTEGRAVIR POTASSIUM
     Indication: HIV INFECTION
     Route: 048
     Dates: start: 20170424

REACTIONS (6)
  - Hallucination [None]
  - Somnolence [None]
  - Dyspnoea [None]
  - Flushing [None]
  - Confusional state [None]
  - Extra dose administered [None]

NARRATIVE: CASE EVENT DATE: 20180428
